FAERS Safety Report 9276023 (Version 1)
Quarter: 2012Q4

REPORT INFORMATION
  Report Type: Spontaneous
  Country: GB (occurrence: None)
  Receive Date: 20121109
  Receipt Date: 20121109
  Transmission Date: 20130627
  Serious: Yes (Life-Threatening, Hospitalization, Disabling, Other)
  Sender: FDA-Public Use
  Company Number: 2012S1000478

PATIENT
  Age: 59 Year
  Sex: Female

DRUGS (2)
  1. CUBICIN [Suspect]
     Indication: DRUG USE FOR UNKNOWN INDICATION
     Dosage: U U ; UNK; U
     Dates: start: 20120426, end: 20120426
  2. CLINDAMYCIN [Concomitant]

REACTIONS (1)
  - Hyperparathyroidism [None]
